FAERS Safety Report 4766495-9 (Version None)
Quarter: 2005Q3

REPORT INFORMATION
  Report Type: 
  Country: None (occurrence: None)
  Receive Date: 20050909
  Receipt Date: 20050831
  Transmission Date: 20060218
  Serious: Yes (Hospitalization)
  Sender: FDA-Public Use
  Company Number: 2005018015

PATIENT
  Sex: Male

DRUGS (3)
  1. VIRACEPT [Suspect]
     Indication: HIV TEST POSITIVE
     Dosage: ORAL
     Route: 048
     Dates: end: 20010708
  2. COMBIVIR [Suspect]
     Indication: HIV TEST POSITIVE
     Dosage: ORAL
     Route: 048
     Dates: end: 20010708
  3. ZIDOVUDINE (ZIIDOVUDINE) [Suspect]
     Indication: HIV INFECTION

REACTIONS (4)
  - MATERNAL DRUGS AFFECTING FOETUS [None]
  - MYASTHENIA GRAVIS [None]
  - SICKLE CELL ANAEMIA [None]
  - STRABISMUS [None]
